FAERS Safety Report 7124628-3 (Version None)
Quarter: 2010Q4

REPORT INFORMATION
  Report Type: 
  Country: None (occurrence: None)
  Receive Date: 20101122
  Receipt Date: 20101122
  Transmission Date: 20110411
  Serious: Yes (Hospitalization, Other)
  Sender: FDA-Public Use
  Company Number: None

PATIENT
  Age: 26 Year
  Sex: Male
  Weight: 88.4514 kg

DRUGS (2)
  1. SINUS BUSTER CAPSICUM ANNUM 4X, EUCALYPTUS BUSTER BRANDS [Suspect]
     Indication: NASAL CONGESTION
     Dosage: 1-2 SPRAYS 3 TIMES DAILY NASAL
     Route: 045
     Dates: start: 20101109, end: 20101112
  2. XANTAC [Concomitant]

REACTIONS (1)
  - BLOOD PRESSURE INCREASED [None]
